FAERS Safety Report 4428160-7 (Version None)
Quarter: 2004Q3

REPORT INFORMATION
  Report Type: 
  Country: None (occurrence: None)
  Receive Date: 20040726
  Receipt Date: 20040507
  Transmission Date: 20050211
  Serious: No
  Sender: FDA-Public Use
  Company Number: USA031255103

PATIENT
  Age: 79 Year
  Sex: Female
  Weight: 55 kg

DRUGS (4)
  1. FORTEO [Suspect]
     Indication: OSTEOPOROSIS
     Dates: start: 20031103
  2. PROCRIT (ERYTHROPOIETIN) [Concomitant]
  3. CALCIUM [Concomitant]
  4. .. [Concomitant]

REACTIONS (6)
  - ARTHRALGIA [None]
  - ASTHENIA [None]
  - BLOOD CALCIUM INCREASED [None]
  - FATIGUE [None]
  - HAEMATOLOGY TEST [None]
  - INJECTION SITE HAEMORRHAGE [None]
